FAERS Safety Report 4884562-6 (Version None)
Quarter: 2005Q4

REPORT INFORMATION
  Report Type: 
  Country: None (occurrence: None)
  Receive Date: 20051201
  Receipt Date: 20050914
  Transmission Date: 20060501
  Serious: No
  Sender: FDA-Public Use
  Company Number: 2005PV002115

PATIENT
  Age: 66 Year
  Sex: Male
  Weight: 100.2449 kg

DRUGS (17)
  1. BYETTA [Suspect]
     Indication: WEIGHT DECREASED
     Dosage: SEE IMAGE
     Route: 058
     Dates: start: 20050811, end: 20050909
  2. BYETTA [Suspect]
     Indication: WEIGHT DECREASED
     Dosage: SEE IMAGE
     Route: 058
     Dates: start: 20050910
  3. TAMBOCOR [Concomitant]
  4. LANOXIN [Concomitant]
  5. AVALIDE [Concomitant]
  6. CLONIDINE HCL [Concomitant]
  7. POTASSIUM [Concomitant]
  8. NIASPAN [Concomitant]
  9. LIPITOR [Concomitant]
  10. FLOMAX [Concomitant]
  11. DILTIAZEM HCL [Concomitant]
  12. ZETIA [Concomitant]
  13. METFORMIN [Concomitant]
  14. ASPIRIN [Concomitant]
  15. SAW PALMETTO [Concomitant]
  16. CENTRUM [Concomitant]
  17. CALCIUM GLUCONATE [Concomitant]

REACTIONS (2)
  - INSOMNIA [None]
  - WEIGHT DECREASED [None]
